FAERS Safety Report 14891513 (Version 2)
Quarter: 2018Q2

REPORT INFORMATION
  Report Type: Spontaneous
  Country: PL (occurrence: PL)
  Receive Date: 20180514
  Receipt Date: 20180523
  Transmission Date: 20180711
  Serious: Yes (Other)
  Sender: FDA-Public Use
  Company Number: PL-BAYER-2018-089251

PATIENT
  Age: 46 Year
  Sex: Female

DRUGS (1)
  1. GADOVIST [Suspect]
     Active Substance: GADOBUTROL

REACTIONS (14)
  - Hypoaesthesia [None]
  - Polyneuropathy [None]
  - Asthma [None]
  - Asthenia [None]
  - Pain [None]
  - Depression [None]
  - Arrhythmia [None]
  - Alopecia [None]
  - Back pain [None]
  - Skin hypertrophy [None]
  - Skin disorder [None]
  - Hyperhidrosis [None]
  - Myalgia [None]
  - Anxiety [None]
